FAERS Safety Report 19876601 (Version 1)
Quarter: 2021Q3

REPORT INFORMATION
  Report Type: Spontaneous
  Country: US (occurrence: US)
  Receive Date: 20210924
  Receipt Date: 20210924
  Transmission Date: 20211014
  Serious: Yes (Hospitalization)
  Sender: FDA-Public Use
  Company Number: US-NOVOPROD-848738

PATIENT
  Sex: Female

DRUGS (1)
  1. NOVOLOG [Suspect]
     Active Substance: INSULIN ASPART
     Indication: TYPE 1 DIABETES MELLITUS
     Dosage: 32 IU, QD (12/12/8 UNITS 3 X A DAY WITH CORRECTIVE DOSE)
     Route: 058

REACTIONS (2)
  - Diabetic ketoacidosis [Not Recovered/Not Resolved]
  - Treatment noncompliance [Not Recovered/Not Resolved]
